FAERS Safety Report 9166515 (Version 1)
Quarter: 2013Q1

REPORT INFORMATION
  Report Type: Spontaneous
  Country: US (occurrence: US)
  Receive Date: 20130315
  Receipt Date: 20130315
  Transmission Date: 20140127
  Serious: Yes (Other)
  Sender: FDA-Public Use
  Company Number: US-AMGEN-USASP2013016544

PATIENT
  Age: 48 Year
  Sex: Female

DRUGS (15)
  1. ARANESP [Suspect]
     Indication: ANAEMIA
     Dosage: 40 MUG, QWK
  2. ARANESP [Suspect]
     Indication: RENAL FAILURE CHRONIC
  3. SYNTHROID [Concomitant]
  4. TYLENOL /00020001/ [Concomitant]
  5. BABY ASPIRIN [Concomitant]
  6. IRON [Concomitant]
  7. BENADRYL                           /00000402/ [Concomitant]
  8. ZEMPLAR [Concomitant]
  9. LACHYDRIN [Concomitant]
  10. RENVELA [Concomitant]
  11. OMEPRAZOLE [Concomitant]
  12. DULCOLAX                           /00064401/ [Concomitant]
  13. GABAPENTIN [Concomitant]
  14. VITAMIN D /00107901/ [Concomitant]
  15. LASIX                              /00032601/ [Concomitant]

REACTIONS (5)
  - Hot flush [Unknown]
  - Hyperventilation [Unknown]
  - Asthenia [Unknown]
  - Dyspnoea [Unknown]
  - Dizziness [Unknown]
